FAERS Safety Report 8352401-7 (Version None)
Quarter: 2012Q2

REPORT INFORMATION
  Report Type: 
  Country: None (occurrence: None)
  Receive Date: 20120511
  Receipt Date: 20120430
  Transmission Date: 20120825
  Serious: Yes (Hospitalization)
  Sender: FDA-Public Use
  Company Number: DE-PFIZER INC-2012107327

PATIENT
  Age: 65 Year
  Sex: Female

DRUGS (1)
  1. SUNITINIB MALATE [Suspect]
     Indication: OVARIAN CANCER
     Dosage: 50 MG, UNK
     Dates: start: 20071218, end: 20120416

REACTIONS (1)
  - SEPSIS [None]
